FAERS Safety Report 17428815 (Version 1)
Quarter: 2020Q1

REPORT INFORMATION
  Report Type: Spontaneous
  Country: AR (occurrence: AR)
  Receive Date: 20200218
  Receipt Date: 20200218
  Transmission Date: 20200409
  Serious: Yes (Other)
  Sender: FDA-Public Use
  Company Number: AR-PFIZER INC-2020068899

PATIENT
  Age: 65 Year
  Sex: Female

DRUGS (2)
  1. IBRANCE [Suspect]
     Active Substance: PALBOCICLIB
     Indication: BREAST CANCER METASTATIC
     Dosage: 125 MG, CYCLIC (DAILY 3X1 SCHEME)
     Dates: start: 20200128
  2. LETROZOLE. [Concomitant]
     Active Substance: LETROZOLE

REACTIONS (9)
  - Cardiovascular insufficiency [Unknown]
  - Varicose vein [Unknown]
  - Bone disorder [Unknown]
  - Cough [Unknown]
  - Vein disorder [Unknown]
  - Eye pruritus [Unknown]
  - Spinal deformity [Unknown]
  - Pruritus [Unknown]
  - Limb injury [Unknown]

NARRATIVE: CASE EVENT DATE: 20200213
